FAERS Safety Report 7692392-5 (Version None)
Quarter: 2011Q3

REPORT INFORMATION
  Report Type: 
  Country: None (occurrence: None)
  Receive Date: 20110818
  Receipt Date: 20110810
  Transmission Date: 20111222
  Serious: No
  Sender: FDA-Public Use
  Company Number: US-US-EMD SERONO, INC.-7075231

PATIENT
  Sex: Male

DRUGS (3)
  1. SOLU-MEDROL [Suspect]
  2. UNSPECIFIED ANALGESIC [Concomitant]
     Indication: PREMEDICATION
  3. REBIF [Suspect]
     Indication: PRODUCT USED FOR UNKNOWN INDICATION
     Route: 058
     Dates: start: 20110627

REACTIONS (4)
  - CONFUSIONAL STATE [None]
  - HYPOAESTHESIA [None]
  - PARAESTHESIA [None]
  - IRRITABILITY [None]
